FAERS Safety Report 8298131-1 (Version None)
Quarter: 2012Q2

REPORT INFORMATION
  Report Type: 
  Country: None (occurrence: None)
  Receive Date: 20120419
  Receipt Date: 20120409
  Transmission Date: 20120825
  Serious: Yes (Other)
  Sender: FDA-Public Use
  Company Number: US-ROCHE-1055667

PATIENT
  Sex: Male

DRUGS (1)
  1. ZELBORAF [Suspect]
     Indication: METASTATIC MALIGNANT MELANOMA
     Route: 048
     Dates: start: 20120306

REACTIONS (9)
  - BURNS SECOND DEGREE [None]
  - MYALGIA [None]
  - VOMITING [None]
  - ARTHRALGIA [None]
  - SKIN PAPILLOMA [None]
  - FATIGUE [None]
  - THERMAL BURN [None]
  - NAUSEA [None]
  - SWELLING [None]
